FAERS Safety Report 8393048-6 (Version None)
Quarter: 2012Q2

REPORT INFORMATION
  Report Type: 
  Country: None (occurrence: None)
  Receive Date: 20120525
  Receipt Date: 20120525
  Transmission Date: 20120825
  Serious: Yes (Life-Threatening, Hospitalization)
  Sender: FDA-Public Use
  Company Number: None

PATIENT
  Age: 64 Year
  Sex: Male
  Weight: 69.8 kg

DRUGS (1)
  1. RISPERIDONE [Suspect]
     Dates: end: 20120208

REACTIONS (2)
  - CONVULSION [None]
  - TARDIVE DYSKINESIA [None]
